FAERS Safety Report 9349604 (Version 1)
Quarter: 2013Q2

REPORT INFORMATION
  Report Type: Spontaneous
  Country: KR (occurrence: None)
  Receive Date: 20130611
  Receipt Date: 20130611
  Transmission Date: 20140414
  Serious: Yes (Other)
  Sender: FDA-Public Use
  Company Number: DSJ-2013-12315

PATIENT
  Age: 40 Year
  Sex: Female
  Weight: 81.5 kg

DRUGS (5)
  1. SEVIKAR (OLMESARTAN MEDOXOMIL, AMLODIPINE BESILATE) (TABLET) (OLMESARTAN MEDOXOMIL, AMLODIPINE BESILATE) [Suspect]
     Indication: HYPERTENSION
     Route: 048
     Dates: start: 20130520, end: 20130521
  2. OXIKLORIN [Concomitant]
  3. NEXIUM [Concomitant]
  4. CALCORT [Concomitant]
  5. KUFARIN [Concomitant]

REACTIONS (4)
  - Headache [None]
  - Vomiting [None]
  - Nausea [None]
  - Dizziness [None]
